FAERS Safety Report 6221355-1 (Version None)
Quarter: 2009Q2

REPORT INFORMATION
  Report Type: 
  Country: None (occurrence: None)
  Receive Date: 20090610
  Receipt Date: 20090602
  Transmission Date: 20091009
  Serious: Yes (Hospitalization)
  Sender: FDA-Public Use
  Company Number: DE-AVENTIS-200911219DE

PATIENT
  Age: 67 Year
  Sex: Male
  Weight: 89.3 kg

DRUGS (3)
  1. TRENTAL [Suspect]
     Indication: SUDDEN HEARING LOSS
     Route: 048
     Dates: start: 20090305, end: 20090310
  2. HAES-STERIL 6% [Concomitant]
     Indication: SUDDEN HEARING LOSS
     Route: 042
     Dates: start: 20090305, end: 20090320
  3. PREDNISOLONE [Concomitant]
     Indication: SUDDEN HEARING LOSS
     Route: 042
     Dates: start: 20090305, end: 20090311

REACTIONS (5)
  - DIZZINESS [None]
  - DYSPNOEA [None]
  - FATIGUE [None]
  - GENERAL PHYSICAL HEALTH DETERIORATION [None]
  - TRANSAMINASES INCREASED [None]
